FAERS Safety Report 16292530 (Version 1)
Quarter: 2019Q2

REPORT INFORMATION
  Report Type: Spontaneous
  Country: US (occurrence: US)
  Receive Date: 20190509
  Receipt Date: 20190509
  Transmission Date: 20190711
  Serious: No
  Sender: FDA-Public Use
  Company Number: US-ALKERMES INC.-ALK-2018-003451

PATIENT
  Age: 38 Year
  Sex: Male

DRUGS (1)
  1. VIVITROL [Suspect]
     Active Substance: NALTREXONE
     Indication: DRUG DEPENDENCE
     Dosage: 380 MG, QMO
     Route: 030
     Dates: start: 20180622

REACTIONS (13)
  - Syncope [Recovered/Resolved]
  - Injection site reaction [Recovered/Resolved]
  - Limb discomfort [Unknown]
  - Myalgia [Not Recovered/Not Resolved]
  - Arthralgia [Unknown]
  - Muscle spasms [Not Recovered/Not Resolved]
  - Influenza like illness [Unknown]
  - Feeling abnormal [Recovered/Resolved]
  - Parosmia [Not Recovered/Not Resolved]
  - Injection site pain [Recovered/Resolved]
  - Pain [Unknown]
  - Taste disorder [Not Recovered/Not Resolved]
  - Increased appetite [Not Recovered/Not Resolved]

NARRATIVE: CASE EVENT DATE: 2018
